FAERS Safety Report 7660229-6 (Version None)
Quarter: 2011Q3

REPORT INFORMATION
  Report Type: 
  Country: None (occurrence: None)
  Receive Date: 20110805
  Receipt Date: 20110802
  Transmission Date: 20111222
  Serious: Yes (Death, Hospitalization)
  Sender: FDA-Public Use
  Company Number: PHFR2011GB04552

PATIENT
  Age: 68 Year
  Sex: Female

DRUGS (11)
  1. ALENDRONIC ACID [Concomitant]
     Indication: OSTEOPENIA
  2. ALENDRONIC ACID [Concomitant]
     Indication: OSTEOARTHRITIS
     Dosage: 70 MG, QW
     Route: 065
     Dates: start: 20091130
  3. TRAMADOL HCL [Concomitant]
     Indication: ESSENTIAL HYPERTENSION
     Dosage: 50 MG, 6 TIMES A DAY
     Route: 065
     Dates: start: 20060320
  4. TRIAMCINOLONE ACETONIDE [Concomitant]
     Indication: OSTEOARTHRITIS
     Route: 030
     Dates: start: 20090914, end: 20110505
  5. ACETAMINOPHEN AND CODEINE PHOSPHATE [Concomitant]
     Indication: SPINAL OSTEOARTHRITIS
  6. ACETAMINOPHEN AND CODEINE PHOSPHATE [Concomitant]
     Indication: NEURALGIA
  7. ESTRADIOL [Concomitant]
     Dosage: 25 UG, UNK
     Route: 065
     Dates: start: 20010927
  8. ACETAMINOPHEN AND CODEINE PHOSPHATE [Concomitant]
     Indication: OSTEOARTHRITIS
     Route: 065
     Dates: start: 20060227
  9. DICLOFENAC SODIUM [Suspect]
     Indication: OSTEOARTHRITIS
     Dosage: 50 MG, TID
     Route: 048
     Dates: start: 20080708, end: 20110531
  10. GABAPENTIN [Concomitant]
     Indication: NEURALGIA
     Dosage: 300 MG, 6TIMES A DAY
     Dates: start: 20060126
  11. AMITRIPTYLINE HCL [Concomitant]
     Dosage: 10 MG, QD
     Route: 065
     Dates: start: 20050614

REACTIONS (12)
  - BLOOD SODIUM DECREASED [None]
  - ENTERITIS [None]
  - MALAISE [None]
  - C-REACTIVE PROTEIN INCREASED [None]
  - COLITIS ISCHAEMIC [None]
  - HAEMATOCHEZIA [None]
  - DEATH [None]
  - FATIGUE [None]
  - DIARRHOEA [None]
  - ABDOMINAL PAIN [None]
  - ABDOMINAL REBOUND TENDERNESS [None]
  - PAIN [None]
